FAERS Safety Report 4985166-7 (Version None)
Quarter: 2006Q2

REPORT INFORMATION
  Report Type: 
  Country: None (occurrence: None)
  Receive Date: 20060427
  Receipt Date: 20050829
  Transmission Date: 20061013
  Serious: Yes (Hospitalization)
  Sender: FDA-Public Use
  Company Number: US-MERCK-0508USA04806

PATIENT
  Age: 83 Year
  Sex: Female
  Weight: 47 kg

DRUGS (1)
  1. VIOXX [Suspect]
     Indication: PAIN
     Route: 048
     Dates: end: 20040101

REACTIONS (8)
  - DEMENTIA [None]
  - EMOTIONAL DISTRESS [None]
  - GENERAL SYMPTOM [None]
  - OVERDOSE [None]
  - PAIN IN EXTREMITY [None]
  - PALPITATIONS [None]
  - POOR PERIPHERAL CIRCULATION [None]
  - THROMBOSIS [None]
